FAERS Safety Report 17858059 (Version 1)
Quarter: 2020Q2

REPORT INFORMATION
  Report Type: Report from Study
  Country: None (occurrence: IE)
  Receive Date: 20200604
  Receipt Date: 20200604
  Transmission Date: 20200714
  Serious: Yes (Hospitalization)
  Sender: FDA-Public Use
  Company Number: IE-ABBVIE-20K-229-3430809-00

PATIENT
  Age: 24 Year
  Sex: Female

DRUGS (1)
  1. HUMIRA [Suspect]
     Active Substance: ADALIMUMAB
     Indication: COLITIS ULCERATIVE
     Route: 058
     Dates: end: 202005

REACTIONS (7)
  - Haematemesis [Unknown]
  - Malaise [Not Recovered/Not Resolved]
  - Haematochezia [Unknown]
  - Back pain [Unknown]
  - Gastroenteritis [Unknown]
  - Food intolerance [Unknown]
  - Constipation [Unknown]

NARRATIVE: CASE EVENT DATE: 2020
